FAERS Safety Report 9717210 (Version 8)
Quarter: 2015Q1

REPORT INFORMATION
  Report Type: Spontaneous
  Country: US (occurrence: US)
  Receive Date: 20131127
  Receipt Date: 20150316
  Transmission Date: 20150721
  Serious: Yes (Hospitalization, Other)
  Sender: FDA-Public Use
  Company Number: US-JNJFOC-20131114233

PATIENT

DRUGS (5)
  1. AZATHIOPRINE. [Suspect]
     Active Substance: AZATHIOPRINE
     Indication: PRODUCT USED FOR UNKNOWN INDICATION
     Route: 065
  2. 6-MERCAPTOPURINE [Suspect]
     Active Substance: MERCAPTOPURINE
     Indication: PRODUCT USED FOR UNKNOWN INDICATION
     Route: 065
  3. METHOTREXATE [Suspect]
     Active Substance: METHOTREXATE
     Indication: PRODUCT USED FOR UNKNOWN INDICATION
     Route: 065
  4. INFLIXIMAB, RECOMBINANT [Suspect]
     Active Substance: INFLIXIMAB
     Indication: CROHN^S DISEASE
     Dosage: 10 MG/KG, ONCE IN 7 WEEKS--20 MG/KG, ONCE IN 4 WEEKS. V7: DOSE 10 AND 22.5 MG/KG EVERY 4-7 WEEKS.
     Route: 042
  5. ACETAMINOPHEN. [Concomitant]
     Active Substance: ACETAMINOPHEN
     Indication: PREMEDICATION
     Route: 065

REACTIONS (27)
  - Systemic mycosis [Unknown]
  - Drug ineffective [Unknown]
  - Coxsackie viral infection [Unknown]
  - Drug specific antibody present [Unknown]
  - Off label use [Unknown]
  - Pneumonia [Unknown]
  - Infusion related reaction [Recovered/Resolved]
  - Anal abscess [Unknown]
  - Palpitations [Unknown]
  - Autoimmune disorder [Unknown]
  - Bacterial diarrhoea [Unknown]
  - Sinusitis [Unknown]
  - Stridor [Unknown]
  - Fungal infection [Unknown]
  - Incorrect dose administered [Unknown]
  - Herpes zoster [Unknown]
  - Skin infection [Unknown]
  - Lupus-like syndrome [Unknown]
  - Viral infection [Unknown]
  - Dermatitis [Unknown]
  - Genital infection female [Unknown]
  - Respiratory tract infection [Unknown]
  - Device related infection [Unknown]
  - Urinary tract infection [Unknown]
  - Abscess [Unknown]
  - Infection [Unknown]
  - Drug level decreased [Unknown]
